FAERS Safety Report 9685975 (Version 2)
Quarter: 2013Q4

REPORT INFORMATION
  Report Type: Spontaneous
  Country: US (occurrence: US)
  Receive Date: 20131113
  Receipt Date: 20131113
  Transmission Date: 20140711
  Serious: No
  Sender: FDA-Public Use
  Company Number: US-ALLERGAN-1309317US

PATIENT
  Sex: Female

DRUGS (1)
  1. COMBIGAN[R] [Suspect]
     Indication: OPEN ANGLE GLAUCOMA
     Dosage: 2 GTT, BID
     Route: 047
     Dates: start: 201303

REACTIONS (7)
  - Adverse reaction [Unknown]
  - Lacrimation increased [Recovered/Resolved]
  - Eye pruritus [Recovered/Resolved]
  - Ocular hyperaemia [Recovered/Resolved]
  - Eyelid pain [Recovered/Resolved]
  - Erythema of eyelid [Recovered/Resolved]
  - Drug hypersensitivity [Unknown]
